FAERS Safety Report 6180310-0 (Version None)
Quarter: 2009Q2

REPORT INFORMATION
  Report Type: 
  Country: None (occurrence: None)
  Receive Date: 20090504
  Receipt Date: 20090504
  Transmission Date: 20091009
  Serious: Yes (Other)
  Sender: FDA-Public Use
  Company Number: None

PATIENT
  Age: 35 Year
  Sex: Female
  Weight: 80.7403 kg

DRUGS (2)
  1. BUDEPRION SR 150MG TABLET TEVA [Suspect]
     Indication: ATTENTION DEFICIT/HYPERACTIVITY DISORDER
     Dosage: 1 150 MG ONCE DAILY PO
     Route: 048
     Dates: start: 20090422, end: 20090501
  2. BUDEPRION SR 150MG TABLET TEVA [Suspect]
     Indication: DEPRESSION
     Dosage: 1 150 MG ONCE DAILY PO
     Route: 048
     Dates: start: 20090422, end: 20090501

REACTIONS (14)
  - AGGRESSION [None]
  - ANGER [None]
  - ANXIETY [None]
  - APATHY [None]
  - CONDITION AGGRAVATED [None]
  - CRYING [None]
  - DEPRESSION [None]
  - FEELING ABNORMAL [None]
  - HYPERPHAGIA [None]
  - IMPULSIVE BEHAVIOUR [None]
  - IRRITABILITY [None]
  - SCREAMING [None]
  - SUICIDAL IDEATION [None]
  - THINKING ABNORMAL [None]
